FAERS Safety Report 6268247-X (Version None)
Quarter: 2009Q3

REPORT INFORMATION
  Report Type: 
  Country: None (occurrence: None)
  Receive Date: 20090714
  Receipt Date: 20090714
  Transmission Date: 20100115
  Serious: Yes (Other)
  Sender: FDA-Public Use
  Company Number: None

PATIENT
  Age: 25 Year
  Sex: Female
  Weight: 57.6068 kg

DRUGS (3)
  1. AMOXICILLIN AND CLAVULANATE POTASSIUM [Suspect]
     Indication: COSMETIC BODY PIERCING
     Dosage: 1 TAB 12HRS PO
     Route: 048
     Dates: start: 20090710, end: 20090713
  2. AMOXICILLIN AND CLAVULANATE POTASSIUM [Suspect]
     Indication: INFECTION
     Dosage: 1 TAB 12HRS PO
     Route: 048
     Dates: start: 20090710, end: 20090713
  3. AMOXICILLIN AND CLAVULANATE POTASSIUM [Suspect]
     Indication: KIDNEY INFECTION
     Dosage: 1 TAB 12HRS PO
     Route: 048
     Dates: start: 20090710, end: 20090713

REACTIONS (6)
  - ABDOMINAL PAIN UPPER [None]
  - DEHYDRATION [None]
  - DIARRHOEA [None]
  - MALAISE [None]
  - NAUSEA [None]
  - VOMITING [None]
